FAERS Safety Report 21718588 (Version 1)
Quarter: 2022Q4

REPORT INFORMATION
  Report Type: Spontaneous
  Country: None (occurrence: CA)
  Receive Date: 20221212
  Receipt Date: 20221212
  Transmission Date: 20230113
  Serious: Yes (Other)
  Sender: FDA-Public Use
  Company Number: CA-B.Braun Medical Inc.-2135808

PATIENT
  Sex: Female

DRUGS (7)
  1. DEXTROSE [Suspect]
     Active Substance: DEXTROSE
     Indication: Product used for unknown indication
     Route: 065
  2. AMPICILLIN [Suspect]
     Active Substance: AMPICILLIN
     Route: 042
  3. ATOSIBAN [Suspect]
     Active Substance: ATOSIBAN
     Route: 065
  4. AZITHROMYCIN [Suspect]
     Active Substance: AZITHROMYCIN
     Route: 048
  5. BETAMETHASONE [Suspect]
     Active Substance: BETAMETHASONE
     Route: 065
  6. GENTAMICIN [Suspect]
     Active Substance: GENTAMICIN
     Route: 042
  7. MAGNESIUM SULFATE [Suspect]
     Active Substance: MAGNESIUM SULFATE
     Route: 065

REACTIONS (3)
  - Maternal exposure during pregnancy [Unknown]
  - Product use in unapproved indication [Unknown]
  - Stillbirth [Unknown]
